FAERS Safety Report 22634756 (Version 1)
Quarter: 2023Q2

REPORT INFORMATION
  Report Type: Spontaneous
  Country: CN (occurrence: CN)
  Receive Date: 20230623
  Receipt Date: 20230623
  Transmission Date: 20230722
  Serious: Yes (Other)
  Sender: FDA-Public Use
  Company Number: CN-SA-SAC20230621000155

PATIENT
  Age: 75 Year
  Sex: Male
  Weight: 60 kg

DRUGS (3)
  1. ENOXAPARIN SODIUM [Suspect]
     Active Substance: ENOXAPARIN SODIUM
     Indication: Haemodialysis
     Dosage: 0.6 ML, QD
     Route: 042
     Dates: start: 20230614, end: 20230614
  2. CEFTAZIDIME [Suspect]
     Active Substance: CEFTAZIDIME
     Indication: Infection
     Dosage: 2 G, BID
     Route: 041
     Dates: start: 20230613, end: 20230616
  3. ORNIDAZOLE [Concomitant]
     Active Substance: ORNIDAZOLE
     Indication: Infection
     Dosage: UNK
     Route: 041
     Dates: start: 20230613, end: 20230616

REACTIONS (2)
  - Aplastic anaemia [Recovering/Resolving]
  - Platelet count decreased [Recovering/Resolving]

NARRATIVE: CASE EVENT DATE: 20230615
